FAERS Safety Report 8218798-3 (Version None)
Quarter: 2012Q1

REPORT INFORMATION
  Report Type: 
  Country: None (occurrence: None)
  Receive Date: 20120307
  Receipt Date: 20100603
  Transmission Date: 20120608
  Serious: Yes (Other)
  Sender: FDA-Public Use
  Company Number: PHHY2010US34533

PATIENT
  Age: 45 Year
  Sex: Male
  Weight: 145.1 kg

DRUGS (11)
  1. AFINITOR [Suspect]
     Indication: RENAL CELL CARCINOMA
     Dosage: 10 MG, QD, ORAL
     Route: 048
     Dates: start: 20100401
  2. SUTENT [Concomitant]
  3. ZANTAC [Concomitant]
  4. LISINOPRIL [Concomitant]
  5. SIMVASTATIN [Concomitant]
  6. AMLODIPINE [Concomitant]
  7. HYDROCODONE BITARTRATE [Concomitant]
  8. ALLOPURINOL [Concomitant]
  9. PLAVIX [Concomitant]
  10. HYDROCHLOROTHIAZIDE [Concomitant]
  11. ASPIRIN [Concomitant]

REACTIONS (2)
  - CHEST PAIN [None]
  - COUGH [None]
